FAERS Safety Report 8218955-6 (Version None)
Quarter: 2012Q1

REPORT INFORMATION
  Report Type: 
  Country: None (occurrence: None)
  Receive Date: 20120319
  Receipt Date: 20120312
  Transmission Date: 20120608
  Serious: Yes (Death, Disabling, Other)
  Sender: FDA-Public Use
  Company Number: US-MERCK-1201USA01018

PATIENT
  Age: 90 Year
  Sex: Female
  Weight: 47 kg

DRUGS (4)
  1. CYANOCOBALAMIN [Concomitant]
     Indication: PERNICIOUS ANAEMIA
     Route: 065
  2. CARDIZEM CD [Concomitant]
     Route: 065
  3. FOSAMAX [Suspect]
     Indication: OSTEOPOROSIS
     Route: 048
     Dates: start: 20030101, end: 20100101
  4. BONIVA [Suspect]
     Indication: OSTEOPOROSIS
     Route: 065
     Dates: start: 20090101

REACTIONS (40)
  - GASTROENTERITIS VIRAL [None]
  - EXCORIATION [None]
  - MUSCULOSKELETAL DISORDER [None]
  - INTERVERTEBRAL DISC DISORDER [None]
  - TOOTH DEPOSIT [None]
  - DENTAL CARIES [None]
  - FATIGUE [None]
  - FALL [None]
  - ORAL HERPES [None]
  - CONTUSION [None]
  - AORTIC ANEURYSM [None]
  - LIPIDS ABNORMAL [None]
  - TOOTH FRACTURE [None]
  - ABSCESS SOFT TISSUE [None]
  - ANGIOEDEMA [None]
  - DIARRHOEA [None]
  - WEIGHT DECREASED [None]
  - POST PROCEDURAL COMPLICATION [None]
  - PARATHYROID DISORDER [None]
  - ARTHRALGIA [None]
  - FAECAL INCONTINENCE [None]
  - PAIN [None]
  - MOUTH HAEMORRHAGE [None]
  - CORONARY ARTERY DISEASE [None]
  - DEATH [None]
  - HIP FRACTURE [None]
  - CARDIAC MURMUR [None]
  - DIZZINESS [None]
  - JOINT INJURY [None]
  - HYPOACUSIS [None]
  - DEHYDRATION [None]
  - FUNGAL INFECTION [None]
  - IMPAIRED HEALING [None]
  - CAROTID ARTERIOSCLEROSIS [None]
  - OSTEONECROSIS OF JAW [None]
  - DEMENTIA ALZHEIMER'S TYPE [None]
  - LABILE HYPERTENSION [None]
  - HAEMARTHROSIS [None]
  - DEMENTIA [None]
  - ARTERIOSCLEROSIS [None]
